FAERS Safety Report 19112511 (Version 1)
Quarter: 2021Q2

REPORT INFORMATION
  Report Type: Spontaneous
  Country: GB (occurrence: GB)
  Receive Date: 20210409
  Receipt Date: 20210409
  Transmission Date: 20210717
  Serious: Yes (Disabling)
  Sender: FDA-Public Use
  Company Number: GB-TEVA-2021-GB-1899063

PATIENT
  Age: 44 Year
  Sex: Female
  Weight: 99 kg

DRUGS (13)
  1. TRIMETHOPRIM. [Suspect]
     Active Substance: TRIMETHOPRIM
     Indication: ILL-DEFINED DISORDER
     Dates: start: 20130315
  2. AMITRIPTYLINE HYDROCHLORIDE. [Concomitant]
     Active Substance: AMITRIPTYLINE HYDROCHLORIDE
     Indication: ILL-DEFINED DISORDER
     Dosage: 2?3 NOCTE
     Dates: start: 20191206
  3. BACLOFEN. [Concomitant]
     Active Substance: BACLOFEN
     Indication: ILL-DEFINED DISORDER
     Dosage: TAKE ONE TABLET THREE TIMES A DAY WHEN REQUIRED...
     Dates: start: 20200722
  4. DESOGESTREL [Concomitant]
     Active Substance: DESOGESTREL
     Indication: ILL-DEFINED DISORDER
     Dosage: TAKE ONE TABLET ONCE A DAY, EVERYDAY WITHOUT A ...
     Dates: start: 20210128
  5. CITALOPRAM [Concomitant]
     Active Substance: CITALOPRAM HYDROBROMIDE
     Indication: ILL-DEFINED DISORDER
     Dosage: ONE TO BE TAKEN EACH DAY
     Dates: start: 20191206
  6. DULOXETINE. [Concomitant]
     Active Substance: DULOXETINE
     Indication: ILL-DEFINED DISORDER
     Dosage: ONE TO BE TAKEN EACH DAY
     Dates: start: 20191206
  7. FOLIC ACID. [Concomitant]
     Active Substance: FOLIC ACID
     Indication: ILL-DEFINED DISORDER
     Dosage: TAKE ONE DAILY
     Dates: start: 20191206
  8. METOJECT [Concomitant]
     Active Substance: METHOTREXATE SODIUM
     Indication: ILL-DEFINED DISORDER
     Dosage: ONCE WEEKLY
     Dates: start: 20180907
  9. MORPHINE SULFATE. [Concomitant]
     Active Substance: MORPHINE SULFATE
     Indication: ILL-DEFINED DISORDER
     Dosage: 2.5ML OR 5ML AS REQUIRED, UP TO FOUR TIMES DAIL...
     Dates: start: 20191206
  10. OXYCODONE HYDROCHLORIDE. [Concomitant]
     Active Substance: OXYCODONE HYDROCHLORIDE
     Indication: ILL-DEFINED DISORDER
     Dosage: TAKE ONE EVERY 12 HRS
     Dates: start: 20200429, end: 20210113
  11. TRAMADOL. [Concomitant]
     Active Substance: TRAMADOL
     Indication: ILL-DEFINED DISORDER
     Dosage: TAKE ONE TWICE A DAY.
     Dates: start: 20210323
  12. FULTIUM?D3 [Concomitant]
     Active Substance: CHOLECALCIFEROL
     Indication: ILL-DEFINED DISORDER
     Dosage: 1 TABLET DAILY
     Dates: start: 20191206
  13. LANSOPRAZOLE. [Concomitant]
     Active Substance: LANSOPRAZOLE
     Indication: ILL-DEFINED DISORDER
     Dosage: ONE DAILY WHEN REQUIRED
     Dates: start: 20191206

REACTIONS (2)
  - Arthralgia [Recovered/Resolved]
  - Rash [Recovered/Resolved]

NARRATIVE: CASE EVENT DATE: 20210331
